FAERS Safety Report 8766841 (Version 2)
Quarter: 2012Q4

REPORT INFORMATION
  Report Type: 
  Country: US (occurrence: US)
  Receive Date: 20120905
  Receipt Date: 20120912
  Transmission Date: 20130627
  Serious: Yes (Other)
  Sender: FDA-Public Use
  Company Number: US-BAYER-2012-090649

PATIENT
  Age: 57 Year
  Sex: Male
  Weight: 113 kg

DRUGS (2)
  1. BAYER GENUINE ASPIRIN ORIGINAL STRENGTH [Suspect]
     Indication: ISCHAEMIC HEART DISEASE PROPHYLAXIS
     Dosage: TAB, QD
     Route: 048
     Dates: start: 1988, end: 2012
  2. BAYER ASPIRIN REGIMEN ADULT LOW STRENGTH [Suspect]
     Dosage: UNK, QD
     Route: 048
     Dates: start: 2010

REACTIONS (3)
  - Myocardial infarction [Recovered/Resolved]
  - Cardiac operation [Recovered/Resolved]
  - Cardiac pacemaker insertion [Recovered/Resolved]
